FAERS Safety Report 13828249 (Version 2)
Quarter: 2017Q3

REPORT INFORMATION
  Report Type: Spontaneous
  Country: IT (occurrence: IT)
  Receive Date: 20170803
  Receipt Date: 20170814
  Transmission Date: 20171127
  Serious: Yes (Hospitalization, Other)
  Sender: FDA-Public Use
  Company Number: IT-TAKEDA-2017TUS016178

PATIENT
  Age: 50 Year
  Sex: Male
  Weight: 70 kg

DRUGS (6)
  1. BRINTELLIX [Suspect]
     Active Substance: VORTIOXETINE HYDROBROMIDE
     Indication: MAJOR DEPRESSION
     Dosage: 5 MG, QD
     Route: 065
     Dates: start: 201608, end: 20170612
  2. RIVOTRIL [Suspect]
     Active Substance: CLONAZEPAM
     Dosage: 12.5 MG, UNK
     Route: 065
     Dates: start: 20170613, end: 20170613
  3. BRINTELLIX [Suspect]
     Active Substance: VORTIOXETINE HYDROBROMIDE
     Dosage: 250 MG, UNK
     Route: 065
     Dates: start: 20170613, end: 20170613
  4. RIVOTRIL [Suspect]
     Active Substance: CLONAZEPAM
     Indication: MAJOR DEPRESSION
     Dosage: 2 MG, QD
     Route: 065
     Dates: start: 201608, end: 20170612
  5. DENIBAN [Concomitant]
     Active Substance: AMISULPRIDE
     Indication: MAJOR DEPRESSION
     Dosage: UNK UNK, QD
     Route: 065
     Dates: start: 201310, end: 201706
  6. DENIBAN [Concomitant]
     Active Substance: AMISULPRIDE
     Dosage: UNK
     Route: 065
     Dates: start: 201608, end: 201706

REACTIONS (5)
  - Suicide attempt [Recovered/Resolved]
  - Gamma-glutamyltransferase increased [Unknown]
  - Intentional overdose [Recovered/Resolved]
  - Hyperkalaemia [Recovered/Resolved]
  - Drug ineffective [Unknown]

NARRATIVE: CASE EVENT DATE: 20170613
